FAERS Safety Report 5273313-1 (Version None)
Quarter: 2007Q1

REPORT INFORMATION
  Report Type: 
  Country: None (occurrence: None)
  Receive Date: 20070319
  Receipt Date: 20070307
  Transmission Date: 20070707
  Serious: Yes (Hospitalization)
  Sender: FDA-Public Use
  Company Number: 237816

PATIENT
  Age: 46 Year
  Sex: Female

DRUGS (2)
  1. RAPTIVA [Suspect]
     Indication: PSORIASIS
     Dosage: 0.8 ML, 1/WEEK, SUBCUTANEOUS
     Route: 058
     Dates: start: 20041101, end: 20070219
  2. CID. ACETYLSALIC. (ASPIRIN) [Concomitant]

REACTIONS (4)
  - CEREBELLAR INFARCTION [None]
  - DYSARTHRIA [None]
  - DYSPHAGIA [None]
  - VISUAL DISTURBANCE [None]
